FAERS Safety Report 20838482 (Version 1)
Quarter: 2022Q2

REPORT INFORMATION
  Report Type: Spontaneous
  Country: US (occurrence: None)
  Receive Date: 20220516
  Receipt Date: 20220516
  Transmission Date: 20220721
  Serious: Yes (Death)
  Sender: FDA-Public Use
  Company Number: None

PATIENT
  Age: 77 Year
  Sex: Male

DRUGS (11)
  1. ERLEADA [Suspect]
     Active Substance: APALUTAMIDE
     Indication: Prostate cancer
     Dosage: FREQUENCY : DAILY;?
     Route: 048
     Dates: start: 20200610, end: 20220504
  2. ELIQUIS [Concomitant]
     Active Substance: APIXABAN
  3. Loratadine 10mg tablets [Concomitant]
  4. Percocet 5/325mg tablets [Concomitant]
  5. Serevent Diskus 50mcg oral inhaler [Concomitant]
  6. SERTRALINE [Concomitant]
     Active Substance: SERTRALINE HYDROCHLORIDE
  7. Sertraline 25mg tablets [Concomitant]
  8. TRAZODONE [Concomitant]
     Active Substance: TRAZODONE HYDROCHLORIDE
  9. Vitamin B-1 100mg tablets [Concomitant]
  10. Vitamin B-12 1000mcg tablets [Concomitant]
  11. Vitamin D 1000IU tablets [Concomitant]

REACTIONS (1)
  - Death [None]

NARRATIVE: CASE EVENT DATE: 20220504
